FAERS Safety Report 8591377-4 (Version None)
Quarter: 2012Q3

REPORT INFORMATION
  Report Type: 
  Country: None (occurrence: None)
  Receive Date: 20120803
  Receipt Date: 20120803
  Transmission Date: 20120928
  Serious: Yes (Other)
  Sender: FDA-Public Use
  Company Number: None

PATIENT
  Age: 67 Year
  Sex: Male

DRUGS (1)
  1. LYRICA [Suspect]
     Indication: NERVE INJURY
     Dosage: 75MG TWICE DAILY PO
     Route: 048
     Dates: start: 20120730, end: 20120731

REACTIONS (3)
  - DRY MOUTH [None]
  - ABASIA [None]
  - BACK PAIN [None]
